FAERS Safety Report 4598471-3 (Version None)
Quarter: 2005Q1

REPORT INFORMATION
  Report Type: 
  Country: None (occurrence: None)
  Receive Date: 20050303
  Receipt Date: 20050303
  Transmission Date: 20050727
  Serious: Yes (Death)
  Sender: FDA-Public Use
  Company Number: None

PATIENT
  Age: 74 Year
  Sex: Male
  Weight: 80 kg

DRUGS (1)
  1. IRON DEXTRAN [Suspect]
     Indication: NEPHROGENIC ANAEMIA
     Dosage: 0.5 ML IV PUSH
     Route: 042
     Dates: start: 20041014

REACTIONS (2)
  - CARDIAC ARREST [None]
  - PRURITUS [None]
